FAERS Safety Report 18458411 (Version 1)
Quarter: 2020Q4

REPORT INFORMATION
  Report Type: Spontaneous
  Country: US (occurrence: US)
  Receive Date: 20201103
  Receipt Date: 20201103
  Transmission Date: 20210114
  Serious: Yes (Hospitalization, Other)
  Sender: FDA-Public Use
  Company Number: US-009507513-2010USA012090

PATIENT
  Age: 28621 Day
  Sex: Female
  Weight: 72.6 kg

DRUGS (11)
  1. ATORVASTATIN [Concomitant]
     Active Substance: ATORVASTATIN
     Dosage: 20 MILLIGRAM, QD
     Route: 048
  2. ASPIRIN. [Concomitant]
     Active Substance: ASPIRIN
     Dosage: 81 MILLIGRAM, QD
     Route: 048
     Dates: start: 201812
  3. PRINIVIL [Suspect]
     Active Substance: LISINOPRIL
     Dosage: 10 MILLIGRAM, QD
     Route: 048
  4. BRILINTA [Suspect]
     Active Substance: TICAGRELOR
     Indication: STENT PLACEMENT
     Dosage: 90 MILLIGRAM, Q12H
     Route: 048
     Dates: start: 20181126
  5. CEFTRIAXONE. [Concomitant]
     Active Substance: CEFTRIAXONE
     Indication: URINARY TRACT INFECTION
     Dosage: 1 GRAM, QD
     Route: 042
     Dates: start: 20181126
  6. LIDOCAINE. [Concomitant]
     Active Substance: LIDOCAINE
     Indication: CARDIAC ARREST
     Route: 042
     Dates: start: 20181126, end: 20181126
  7. BRILINTA [Suspect]
     Active Substance: TICAGRELOR
     Indication: MYOCARDIAL INFARCTION
  8. PHENYLEPHRINE [Concomitant]
     Active Substance: PHENYLEPHRINE HYDROCHLORIDE
     Indication: BLOOD PRESSURE ABNORMAL
     Dosage: CONTINUOUSLY
     Route: 042
     Dates: start: 20181126
  9. CALCIUM PHOSPHATE, TRIBASIC [Concomitant]
     Active Substance: TRIBASIC CALCIUM PHOSPHATE
     Route: 048
  10. PEPCID [Concomitant]
     Active Substance: FAMOTIDINE
     Indication: STRESS ULCER
     Dosage: 20 MILLIGRAM, Q12H
     Route: 042
     Dates: start: 20181126
  11. DOPAMINE [Concomitant]
     Active Substance: DOPAMINE HYDROCHLORIDE
     Indication: BRADYCARDIA
     Route: 042
     Dates: start: 20181126, end: 20181126

REACTIONS (7)
  - Myocardial infarction [Unknown]
  - Ventricular fibrillation [Unknown]
  - Cardiac arrest [Unknown]
  - Hypertension [Not Recovered/Not Resolved]
  - Dyslipidaemia [Not Recovered/Not Resolved]
  - Gastrointestinal haemorrhage [Recovered/Resolved]
  - Acute myocardial infarction [Unknown]

NARRATIVE: CASE EVENT DATE: 20181126
